FAERS Safety Report 8425861-0 (Version None)
Quarter: 2012Q2

REPORT INFORMATION
  Report Type: 
  Country: None (occurrence: None)
  Receive Date: 20120611
  Receipt Date: 20120604
  Transmission Date: 20120825
  Serious: Yes (Life-Threatening, Hospitalization)
  Sender: FDA-Public Use
  Company Number: FR-ASTELLAS-2012US005258

PATIENT

DRUGS (5)
  1. AMLODIPINE BESYLATE [Concomitant]
     Indication: HYPERTENSION
     Dosage: UNK
     Route: 048
     Dates: end: 20120521
  2. TARCEVA [Suspect]
     Indication: PRODUCT USED FOR UNKNOWN INDICATION
     Dosage: 150 MG, UNKNOWN/D
     Route: 048
     Dates: start: 20120501, end: 20120519
  3. ASPIRIN [Concomitant]
     Indication: CAROTID ARTERIOSCLEROSIS
     Dosage: 300 MG, UID/QD
     Route: 048
  4. LASIX [Concomitant]
     Indication: HYPERTENSION
     Dosage: 60 MG, UNKNOWN/D
     Route: 048
     Dates: end: 20120521
  5. EXFORGE [Concomitant]
     Indication: HYPERTENSION
     Dosage: 10/160 MG, UNK
     Dates: end: 20120521

REACTIONS (6)
  - RASH [None]
  - RENAL FAILURE ACUTE [None]
  - VOMITING [None]
  - DIARRHOEA [None]
  - NAUSEA [None]
  - GENERAL PHYSICAL HEALTH DETERIORATION [None]
